FAERS Safety Report 24321053 (Version 3)
Quarter: 2024Q3

REPORT INFORMATION
  Report Type: Report from Study
  Country: US (occurrence: US)
  Receive Date: 20240915
  Receipt Date: 20240927
  Transmission Date: 20241016
  Serious: Yes (Other)
  Sender: ABBVIE
  Company Number: US-ABBVIE-5846485

PATIENT
  Age: 78 Year
  Sex: Female

DRUGS (8)
  1. HUMIRA [Suspect]
     Active Substance: ADALIMUMAB
     Indication: Product used for unknown indication
     Route: 058
  2. SKYRIZI [Suspect]
     Active Substance: RISANKIZUMAB-RZAA
     Indication: Crohn^s disease
     Route: 058
     Dates: start: 20230524, end: 2024
  3. SKYRIZI [Suspect]
     Active Substance: RISANKIZUMAB-RZAA
     Route: 058
     Dates: start: 20240726
  4. ANCEF [Suspect]
     Active Substance: CEFAZOLIN SODIUM
     Indication: Product used for unknown indication
     Route: 065
  5. COVID-19 vaccine [Concomitant]
     Indication: COVID-19 immunisation
     Dosage: TOOK BOOSTER DOSES AS WELL
     Route: 065
  6. PRILOSEC [Suspect]
     Active Substance: OMEPRAZOLE MAGNESIUM
     Indication: Product used for unknown indication
     Route: 065
  7. NEXIUM [Suspect]
     Active Substance: ESOMEPRAZOLE MAGNESIUM
     Indication: Product used for unknown indication
     Route: 065
  8. INOSINE [Suspect]
     Active Substance: INOSINE
     Indication: Product used for unknown indication
     Route: 065

REACTIONS (8)
  - Cataract [Recovering/Resolving]
  - Influenza [Recovered/Resolved]
  - Therapeutic product effect decreased [Recovered/Resolved]
  - Fall [Unknown]
  - Urticaria [Unknown]
  - Rash erythematous [Unknown]
  - Face injury [Unknown]
  - Pruritus [Unknown]

NARRATIVE: CASE EVENT DATE: 20240713
